FAERS Safety Report 6165795-8 (Version None)
Quarter: 2009Q2

REPORT INFORMATION
  Report Type: 
  Country: None (occurrence: None)
  Receive Date: 20090423
  Receipt Date: 20090422
  Transmission Date: 20091009
  Serious: Yes (Hospitalization)
  Sender: FDA-Public Use
  Company Number: FR-WYE-G03548209

PATIENT
  Sex: Male

DRUGS (4)
  1. ADVIL [Suspect]
     Dosage: OVERDOSE AMOUNT : 10 TABLETS IN ONE SINGLE DOSE
     Route: 048
     Dates: start: 20090322, end: 20090322
  2. NUROFEN [Suspect]
     Dosage: OVERDOSE AMOUNT : 8 TABLETS IN ONE SINGLE DOSE
     Route: 048
     Dates: start: 20090322, end: 20090322
  3. COLPOSEPTINE [Suspect]
     Dosage: 3 VAGINAL TABLETS IN ONE SINGLE DOSE
     Route: 048
     Dates: start: 20090322, end: 20090322
  4. DI-ANTALVIC [Suspect]
     Dosage: OVERDOSE AMOUNT : 20 TABLETS IN ONE SINGLE DOSE
     Route: 048
     Dates: start: 20090322, end: 20090322

REACTIONS (5)
  - BLOOD BILIRUBIN INCREASED [None]
  - DEHYDRATION [None]
  - INTENTIONAL OVERDOSE [None]
  - RENAL FAILURE ACUTE [None]
  - SUICIDE ATTEMPT [None]
